FAERS Safety Report 20112577 (Version 1)
Quarter: 2021Q4

REPORT INFORMATION
  Report Type: Report from Study
  Country: PK (occurrence: PK)
  Receive Date: 20211125
  Receipt Date: 20211125
  Transmission Date: 20220303
  Serious: Yes (Death)
  Sender: FDA-Public Use
  Company Number: PK-NOVARTISPH-NVSC2021PK268276

PATIENT
  Sex: Female
  Weight: 45 kg

DRUGS (1)
  1. TASIGNA [Suspect]
     Active Substance: NILOTINIB
     Indication: Philadelphia positive chronic myeloid leukaemia
     Dosage: 600 MG, (200 MG, 2+0+1)
     Route: 048
     Dates: start: 20201208

REACTIONS (1)
  - Bicytopenia [Fatal]
